FAERS Safety Report 10006135 (Version 1)
Quarter: 2014Q1

REPORT INFORMATION
  Report Type: Spontaneous
  Country: US (occurrence: US)
  Receive Date: 20140313
  Receipt Date: 20140313
  Transmission Date: 20141002
  Serious: Yes (Hospitalization)
  Sender: FDA-Public Use
  Company Number: US-BAYER-2014-036983

PATIENT
  Age: 41 Year
  Sex: Female
  Weight: 61.68 kg

DRUGS (3)
  1. YAZ [Suspect]
  2. OCELLA [Suspect]
  3. ADVIL [Concomitant]
     Dosage: UNK
     Dates: start: 201007

REACTIONS (1)
  - Pulmonary embolism [None]
